FAERS Safety Report 9025367 (Version 1)
Quarter: 2012Q4

REPORT INFORMATION
  Report Type: 
  Country: CA (occurrence: CA)
  Receive Date: 20121211
  Receipt Date: 20121211
  Transmission Date: 20130627
  Serious: Yes (Death)
  Sender: FDA-Public Use
  Company Number: PHHY2012CA081162

PATIENT
  Age: 78 Year
  Sex: Male

DRUGS (1)
  1. SANDOSTATIN LAR [Suspect]
     Indication: PANCREATIC CARCINOMA
     Dosage: 30 mg, every 04 weeks
     Route: 030
     Dates: start: 20120717, end: 20121016

REACTIONS (2)
  - Death [Fatal]
  - Fatigue [Unknown]
